FAERS Safety Report 9168605 (Version 2)
Quarter: 2013Q2

REPORT INFORMATION
  Report Type: Spontaneous
  Country: JP (occurrence: JP)
  Receive Date: 20130318
  Receipt Date: 20130429
  Transmission Date: 20140414
  Serious: Yes (Disabling)
  Sender: FDA-Public Use
  Company Number: JP-ASTRAZENECA-2013SE08579

PATIENT
  Age: 58 Year
  Sex: Female
  Weight: 46.5 kg

DRUGS (8)
  1. SEROQUEL [Suspect]
     Indication: SCHIZOPHRENIA
     Route: 048
     Dates: start: 20120102, end: 20121217
  2. ZYPREXA [Suspect]
     Indication: SCHIZOPHRENIA
     Route: 048
     Dates: start: 20111114
  3. VALERIN [Concomitant]
     Indication: SCHIZOPHRENIA
     Route: 048
     Dates: start: 20120102
  4. MAGNESIUM OXIDE [Concomitant]
     Indication: CONSTIPATION
     Dates: start: 20120917
  5. SENNOSIDE [Concomitant]
     Indication: CONSTIPATION
     Dates: start: 20120917
  6. PHYSIO [Concomitant]
     Indication: ILEUS
     Dates: start: 20121206
  7. VAGOSTIGMIN [Concomitant]
     Indication: ILEUS
     Dates: start: 20121206
  8. ALINAMIN-F [Concomitant]
     Indication: ILEUS
     Dates: start: 20121206

REACTIONS (2)
  - Hypoglycaemia [Recovered/Resolved]
  - Ileus [Recovering/Resolving]
